FAERS Safety Report 8827264 (Version 3)
Quarter: 2012Q4

REPORT INFORMATION
  Report Type: Report from Study
  Country: AU (occurrence: AU)
  Receive Date: 20121005
  Receipt Date: 20121121
  Transmission Date: 20130627
  Serious: Yes (Other)
  Sender: FDA-Public Use
  Company Number: AU-ABBOTT-12P-008-0987260-00

PATIENT
  Age: 40 Year
  Sex: Female

DRUGS (13)
  1. HUMIRA [Suspect]
     Indication: CROHN^S DISEASE
     Route: 058
     Dates: start: 20080116, end: 20080116
  2. HUMIRA [Suspect]
     Dosage: week 2
     Route: 058
  3. HUMIRA [Suspect]
     Route: 058
     Dates: end: 20120814
  4. AUGMENTIN DUO [Concomitant]
     Indication: CROHN^S DISEASE
     Dosage: 875/125 mg
     Route: 048
     Dates: start: 20081105, end: 20090429
  5. AUGMENTIN DUO [Concomitant]
     Dosage: 875/125 mg
     Route: 048
  6. PREDNISONE [Concomitant]
     Indication: CROHN^S DISEASE
     Route: 048
  7. IMURAN [Concomitant]
     Indication: CROHN^S DISEASE
     Route: 048
     Dates: start: 20090114, end: 20090407
  8. IMURAN [Concomitant]
     Route: 048
     Dates: start: 20090408, end: 20100512
  9. IMURAN [Concomitant]
     Route: 048
  10. ZINCAPS [Concomitant]
     Indication: ZINC DEFICIENCY
     Route: 048
     Dates: start: 200905
  11. CALTRATE [Concomitant]
     Indication: CALCIUM DEFICIENCY
     Route: 048
     Dates: start: 2009
  12. CALTRATE [Concomitant]
     Indication: PROPHYLAXIS
  13. OMEGA 3 FISH OIL [Concomitant]
     Indication: SUPPLEMENTATION THERAPY
     Route: 048
     Dates: start: 2009

REACTIONS (2)
  - Hydrops foetalis [Unknown]
  - Stillbirth [Unknown]
